FAERS Safety Report 6648266-1 (Version None)
Quarter: 2010Q1

REPORT INFORMATION
  Report Type: 
  Country: None (occurrence: None)
  Receive Date: 20100324
  Receipt Date: 20100311
  Transmission Date: 20100710
  Serious: Yes (Hospitalization)
  Sender: FDA-Public Use
  Company Number: IN-ELI_LILLY_AND_COMPANY-IN201003000928

PATIENT
  Sex: Female
  Weight: 88 kg

DRUGS (4)
  1. GEMCITABINE HCL [Suspect]
     Indication: BREAST CANCER METASTATIC
     Dosage: 1000 MG/M2, ON DAY 1 AND DAY 8 EVERY 3 WEEKS
     Route: 042
     Dates: start: 20100125
  2. GEMCITABINE HCL [Suspect]
     Dosage: 750 MG/M2, ON DAY 1 AND DAY 8 EVERY 3 WEEKS
     Route: 042
     Dates: start: 20100215
  3. VINFLUNINE [Suspect]
     Indication: BREAST CANCER METASTATIC
     Dosage: 320 MG/M2, ON DAY 1 EVERY 3 WEEKS
     Route: 042
     Dates: start: 20100125
  4. VINFLUNINE [Suspect]
     Dosage: 280 MG/M2, ON DAY 1 EVERY 3 WEEKS
     Route: 042
     Dates: start: 20100215

REACTIONS (2)
  - ENTEROCOLITIS [None]
  - ORAL CANDIDIASIS [None]
